FAERS Safety Report 9846179 (Version 2)
Quarter: 2014Q1

REPORT INFORMATION
  Report Type: Spontaneous
  Country: CA (occurrence: None)
  Receive Date: 20140123
  Receipt Date: 20140128
  Transmission Date: 20141002
  Serious: Yes (Hospitalization)
  Sender: FDA-Public Use
  Company Number: AUR-APL-2014-00507

PATIENT
  Age: 83 Year
  Sex: Female

DRUGS (22)
  1. AMLODIPINE [Suspect]
     Indication: HYPERTENSION
     Dosage: 5 MG (2.5 MG, 2 IN 1 D), UNKNOWN
  2. RAMIPRIL [Suspect]
     Indication: HYPERTENSION
  3. FUROSEMIDE (FUROSEMIDE) [Suspect]
     Indication: PRODUCT USED FOR UNKNOWN INDICATION
  4. METOPROLOL TARTRATE [Suspect]
     Indication: CORONARY ARTERY DISEASE
     Dosage: 50MG, 25MG, 2 IN 1 D)
  5. NITROGLYCERINE [Suspect]
     Indication: ANGINA PECTORIS
     Dosage: 0.4MG, 2 ON AT 9AM AND OFF AT 10PM
  6. OXAZEPAM [Suspect]
     Indication: ANXIETY
  7. ZOPICLONE (ZOPICLONE) [Suspect]
     Indication: INSOMNIA
  8. CLOPIDOGREL (CLOPIDOGREL) [Concomitant]
  9. ATORVASTATIN (ATORVASTATIN) [Concomitant]
  10. ESCITALOPRAM OXALATE (ESCITALOPRAM OXALATE) [Concomitant]
  11. ERGOCALCIFEROL (ERGOCALCIFEROL) [Concomitant]
  12. HYDROXYCHLOROQUINE SULFATE (HYDROXYCHLOROQUINE SULFATE) (HYDROXYCHLOROQUINE SULFATE) [Concomitant]
  13. CODEINE/PARACETAMOL (PANADEINE CO) [Concomitant]
  14. ACETAMINOPHEN (PARACETAMOL) [Concomitant]
  15. PANTOPRAZOLE (PANTOPRAZOLE) [Concomitant]
  16. NITROGLYCERINE (GLYCERYL TRINITRATE) [Concomitant]
  17. POLYETHYLENE GLYCOL (MACROGOL) [Concomitant]
  18. AMITRIPTYLINE (AMITRIPTYLINE) [Concomitant]
  19. GABAPENTIN (GABAPENTIN) [Concomitant]
  20. IRON (IRON) [Concomitant]
  21. ACETYLSALICYLIC ACID (ACETYLSALICYLIC ACID) [Concomitant]
  22. VITAMIN C (ASCORBIC ACID) [Concomitant]

REACTIONS (11)
  - Fall [None]
  - Dizziness [None]
  - Balance disorder [None]
  - Hypotension [None]
  - Orthostatic hypotension [None]
  - Pain [None]
  - Activities of daily living impaired [None]
  - Muscular weakness [None]
  - Depressed mood [None]
  - Anxiety [None]
  - Poor quality sleep [None]
